FAERS Safety Report 12256418 (Version 2)
Quarter: 2016Q2

REPORT INFORMATION
  Report Type: Spontaneous
  Country: JP (occurrence: JP)
  Receive Date: 20160412
  Receipt Date: 20160414
  Transmission Date: 20160815
  Serious: Yes (Other)
  Sender: FDA-Public Use
  Company Number: PHJP2016JP002199

PATIENT
  Age: 68 Year
  Sex: Male

DRUGS (1)
  1. TASIGNA [Suspect]
     Active Substance: NILOTINIB
     Indication: CHRONIC MYELOID LEUKAEMIA
     Route: 048
     Dates: start: 20130513, end: 20151224

REACTIONS (5)
  - Thrombocytopenia [Not Recovered/Not Resolved]
  - Fibrosis [Unknown]
  - Gene mutation identification test positive [Not Recovered/Not Resolved]
  - Marrow hyperplasia [Unknown]
  - Chronic myeloid leukaemia [Not Recovered/Not Resolved]

NARRATIVE: CASE EVENT DATE: 20151224
